FAERS Safety Report 4586454-9 (Version None)
Quarter: 2005Q1

REPORT INFORMATION
  Report Type: 
  Country: None (occurrence: None)
  Receive Date: 20050218
  Receipt Date: 20050209
  Transmission Date: 20050727
  Serious: Yes (Hospitalization)
  Sender: FDA-Public Use
  Company Number: DE-JNJFOC-20050200907

PATIENT
  Age: 33 Year
  Sex: Male

DRUGS (9)
  1. INFLIXIMAB [Suspect]
     Indication: RHEUMATOID ARTHRITIS
     Route: 042
  2. LEFLUNOMIDE [Suspect]
     Route: 049
  3. LEFLUNOMIDE [Suspect]
     Indication: RHEUMATOID ARTHRITIS
     Route: 049
  4. SULFASALAZINE [Suspect]
     Route: 049
  5. SULFASALAZINE [Suspect]
     Indication: DRUG USE FOR UNKNOWN INDICATION
     Route: 049
  6. FLUTIRPINE MALEATE [Concomitant]
     Indication: PAIN
     Route: 049
  7. ZINC [Concomitant]
  8. IBUPROFEN [Concomitant]
  9. PANTOPRAZOLE SODIUM [Concomitant]
     Route: 049

REACTIONS (4)
  - ABSCESS LIMB [None]
  - CORYNEBACTERIUM INFECTION [None]
  - SEPSIS [None]
  - STAPHYLOCOCCAL INFECTION [None]
